FAERS Safety Report 11283137 (Version 1)
Quarter: 2015Q3

REPORT INFORMATION
  Report Type: Spontaneous
  Country: GB (occurrence: GB)
  Receive Date: 20150720
  Receipt Date: 20150720
  Transmission Date: 20151125
  Serious: Yes (Life-Threatening, Hospitalization)
  Sender: FDA-Public Use
  Company Number: GB-JNJFOC-20150713103

PATIENT
  Age: 85 Year
  Sex: Female

DRUGS (14)
  1. BISACODYL. [Concomitant]
     Active Substance: BISACODYL
     Route: 065
  2. PARACETAMOL [Concomitant]
     Active Substance: ACETAMINOPHEN
     Route: 065
  3. RAMIPRIL. [Concomitant]
     Active Substance: RAMIPRIL
     Route: 065
  4. SIMVASTATIN. [Concomitant]
     Active Substance: SIMVASTATIN
     Route: 065
  5. DOCUSATE [Concomitant]
     Active Substance: DOCUSATE
     Route: 065
  6. LEVOTHYROXINE. [Concomitant]
     Active Substance: LEVOTHYROXINE
     Route: 065
  7. ADCAL-D3 [Concomitant]
     Active Substance: CALCIUM CARBONATE\CHOLECALCIFEROL
     Route: 065
  8. VISCOTEARS [Concomitant]
     Active Substance: CARBOMER
     Route: 065
  9. BISOPROLOL [Concomitant]
     Active Substance: BISOPROLOL
     Route: 065
  10. CARBOMER [Concomitant]
     Active Substance: CARBOMER
     Route: 065
  11. DIGOXIN. [Concomitant]
     Active Substance: DIGOXIN
     Route: 065
  12. XARELTO [Suspect]
     Active Substance: RIVAROXABAN
     Indication: CEREBROVASCULAR ACCIDENT
     Route: 048
     Dates: start: 20150612, end: 20150703
  13. GTN [Concomitant]
     Active Substance: NITROGLYCERIN
     Route: 065
  14. MIRTAZAPIN [Concomitant]
     Active Substance: MIRTAZAPINE
     Route: 065

REACTIONS (2)
  - Cerebral haemorrhage [Unknown]
  - Cerebral infarction [Unknown]

NARRATIVE: CASE EVENT DATE: 20150703
